FAERS Safety Report 9153559 (Version 1)
Quarter: 2013Q1

REPORT INFORMATION
  Report Type: Spontaneous
  Country: DE (occurrence: None)
  Receive Date: 20130204
  Receipt Date: 20130204
  Transmission Date: 20140127
  Serious: Yes (Other)
  Sender: FDA-Public Use
  Company Number: 2013031791

PATIENT
  Sex: Male

DRUGS (1)
  1. FRAGMIN P FORTE (DALTEPARIN SODIUM) SOLUTION FOR INJECTION [Suspect]

REACTIONS (1)
  - Priapism [None]
